FAERS Safety Report 9815844 (Version 1)
Quarter: 2014Q1

REPORT INFORMATION
  Report Type: Report from Study
  Country: US (occurrence: US)
  Receive Date: 20140114
  Receipt Date: 20140114
  Transmission Date: 20141002
  Serious: Yes (Hospitalization)
  Sender: FDA-Public Use
  Company Number: US-JNJFOC-20140103193

PATIENT
  Age: 42 Year
  Sex: Male

DRUGS (1)
  1. REMICADE [Suspect]
     Indication: CROHN^S DISEASE
     Dosage: INITIATED OVER A YEAR PRIOR TO THE DATE OF THIS REPORT.
     Route: 042
     Dates: start: 2013

REACTIONS (2)
  - Nephrolithiasis [Unknown]
  - Fungal infection [Unknown]
